FAERS Safety Report 6248228-2 (Version None)
Quarter: 2009Q2

REPORT INFORMATION
  Report Type: 
  Country: None (occurrence: None)
  Receive Date: 20090629
  Receipt Date: 20090616
  Transmission Date: 20091009
  Serious: Yes (Other)
  Sender: FDA-Public Use
  Company Number: US-JNJFOC-20090605585

PATIENT
  Sex: Female
  Weight: 68.04 kg

DRUGS (18)
  1. REMICADE [Suspect]
     Route: 042
  2. REMICADE [Suspect]
     Indication: RHEUMATOID ARTHRITIS
     Route: 042
  3. FLEXERIL [Concomitant]
  4. OXYGEN [Concomitant]
  5. ATENOLOL [Concomitant]
     Dosage: MORE THAN 10 YEARS
  6. BENICAR [Concomitant]
  7. ZETIA [Concomitant]
  8. SULFASALAZINE [Concomitant]
  9. MAGNESIUM SULFATE [Concomitant]
  10. ASPIRIN [Concomitant]
  11. ALBUTEROL SULFATE AND IPRATROPIUM BROMIDE [Concomitant]
  12. PULMICORT-100 [Concomitant]
     Route: 055
  13. GEMFIBROZIL [Concomitant]
  14. METFORMIN HCL [Concomitant]
  15. NIACIN [Concomitant]
  16. OXYCODONE HCL [Concomitant]
     Indication: PAIN
     Dosage: 10MG/325 MG
  17. HYDROCODONE BITARTRATE [Concomitant]
     Indication: PAIN
  18. TEMAZEPAM [Concomitant]

REACTIONS (10)
  - BLOOD CALCIUM INCREASED [None]
  - CORONARY ARTERY BYPASS [None]
  - DEATH OF RELATIVE [None]
  - HYPOAESTHESIA [None]
  - INFUSION SITE DISCOLOURATION [None]
  - MYOCARDIAL INFARCTION [None]
  - PERIPHERAL ARTERIAL OCCLUSIVE DISEASE [None]
  - SKIN DISCOLOURATION [None]
  - THYROIDECTOMY [None]
  - WEIGHT INCREASED [None]
